FAERS Safety Report 10087251 (Version 3)
Quarter: 2014Q3

REPORT INFORMATION
  Report Type: Spontaneous
  Country: GB (occurrence: GB)
  Receive Date: 20140418
  Receipt Date: 20140903
  Transmission Date: 20150326
  Serious: Yes (Other)
  Sender: FDA-Public Use
  Company Number: GB-PFIZER INC-2014109706

PATIENT
  Age: 53 Year
  Sex: Male
  Weight: 133 kg

DRUGS (6)
  1. RAMIPRIL. [Suspect]
     Active Substance: RAMIPRIL
     Indication: MICROALBUMINURIA
     Dosage: 1.25 MG, UNK
     Route: 048
     Dates: start: 20131007, end: 20140216
  2. LOPERAMIDE [Concomitant]
     Active Substance: LOPERAMIDE
     Dosage: UNK
  3. FORXIGA [Interacting]
     Active Substance: DAPAGLIFLOZIN
     Indication: TYPE 2 DIABETES MELLITUS
     Dosage: 10 MG, 1X/DAY
     Route: 048
     Dates: start: 20130828
  4. CIALIS [Concomitant]
     Active Substance: TADALAFIL
     Dosage: UNK
  5. DULOXETINE HYDROCHLORIDE. [Concomitant]
     Active Substance: DULOXETINE HYDROCHLORIDE
     Dosage: UNK
  6. RAMIPRIL. [Interacting]
     Active Substance: RAMIPRIL
     Dosage: 10 MG, UNK
     Route: 048
     Dates: start: 20140217, end: 20140310

REACTIONS (4)
  - Off label use [Recovered/Resolved]
  - Loss of consciousness [Recovered/Resolved]
  - Drug interaction [Unknown]
  - Hypotension [Recovered/Resolved]

NARRATIVE: CASE EVENT DATE: 20140219
